FAERS Safety Report 7554232-4 (Version None)
Quarter: 2011Q2

REPORT INFORMATION
  Report Type: 
  Country: None (occurrence: None)
  Receive Date: 20110614
  Receipt Date: 20110614
  Transmission Date: 20111010
  Serious: No
  Sender: FDA-Public Use
  Company Number: None

PATIENT
  Age: 64 Year
  Sex: Female
  Weight: 54.4316 kg

DRUGS (2)
  1. ZYCLARA [Suspect]
     Indication: PROPHYLAXIS
     Dosage: .25G PACKET FACE FOR 14 DAYS 1 X NIGHT TIME TOP
     Route: 061
     Dates: start: 20110406, end: 20110420
  2. ZYCLARA [Suspect]
     Indication: PROPHYLAXIS
     Dosage: .25G PACKET CHEST FOR 14 DAYS 1 X NIGHT TIME TOP
     Route: 061
     Dates: start: 20110406, end: 20110408

REACTIONS (4)
  - MORPHOEA [None]
  - APPLICATION SITE VESICLES [None]
  - APPLICATION SITE PAIN [None]
  - APPLICATION SITE DISCOLOURATION [None]
